FAERS Safety Report 4285464-9 (Version None)
Quarter: 2004Q1

REPORT INFORMATION
  Report Type: 
  Country: None (occurrence: None)
  Receive Date: 20040202
  Receipt Date: 20040120
  Transmission Date: 20041129
  Serious: Yes (Other)
  Sender: FDA-Public Use
  Company Number: US-JNJFOC-20040104107

PATIENT
  Age: 61 Year
  Sex: Male
  Weight: 131.0895 kg

DRUGS (11)
  1. REMICADE [Suspect]
     Indication: RHEUMATOID ARTHRITIS
     Dosage: 800 MG, 1 IN 6 WEEK, INTRAVENOUS
     Route: 042
     Dates: start: 20020625
  2. DIOVAN [Concomitant]
  3. K-DUR 10 [Concomitant]
  4. COUMADIN [Concomitant]
  5. METHOTREXATE SODIUM [Concomitant]
  6. FOLIC ACID [Concomitant]
  7. VITAMIN B6 [Concomitant]
  8. CELEBREX [Concomitant]
  9. LORTAB [Concomitant]
  10. OXYCONTIN [Concomitant]
  11. NEXIUM [Concomitant]

REACTIONS (1)
  - OESOPHAGEAL CARCINOMA [None]
